FAERS Safety Report 5734916-0 (Version None)
Quarter: 2008Q2

REPORT INFORMATION
  Report Type: 
  Country: None (occurrence: None)
  Receive Date: 20080508
  Receipt Date: 20080422
  Transmission Date: 20081010
  Serious: Yes (Other)
  Sender: FDA-Public Use
  Company Number: ACO_00459_2008

PATIENT
  Sex: Female
  Weight: 53.978 kg

DRUGS (8)
  1. ZANAFLEX [Suspect]
     Indication: DRUG USE FOR UNKNOWN INDICATION
     Dosage: DF
  2. LYRICA [Suspect]
     Indication: FIBROMYALGIA
     Dosage: 75 MG TID, (75 MD TID)
     Dates: start: 20071228, end: 20080101
  3. LYRICA [Suspect]
     Indication: FIBROMYALGIA
     Dosage: 75 MG TID, (75 MD TID)
     Dates: start: 20080101
  4. NEURONTIN [Suspect]
     Indication: MIGRAINE
     Dosage: DF
  5. DEPAKOTE [Suspect]
     Indication: DRUG USE FOR UNKNOWN INDICATION
     Dosage: DF
  6. IBUPROFEN [Concomitant]
  7. EFFEXOR [Concomitant]
  8. TOPAMAX [Concomitant]

REACTIONS (18)
  - AMNESIA [None]
  - APHONIA [None]
  - BRUXISM [None]
  - DEPRESSION [None]
  - DRUG INTERACTION [None]
  - DRY MOUTH [None]
  - DYSGEUSIA [None]
  - HYPERTENSION [None]
  - MULTIPLE ALLERGIES [None]
  - NAUSEA [None]
  - PAIN [None]
  - PEAU D'ORANGE [None]
  - POLLAKIURIA [None]
  - SEASONAL ALLERGY [None]
  - SUICIDAL IDEATION [None]
  - THIRST [None]
  - VISION BLURRED [None]
  - WEIGHT FLUCTUATION [None]
